FAERS Safety Report 11678867 (Version 1)
Quarter: 2015Q4

REPORT INFORMATION
  Report Type: Spontaneous
  Country: US (occurrence: US)
  Receive Date: 20151028
  Receipt Date: 20151028
  Transmission Date: 20160304
  Serious: Yes (Other)
  Sender: FDA-Public Use
  Company Number: US-ABBVIE-15P-163-1485988-00

PATIENT
  Age: 73 Year
  Sex: Female
  Weight: 72.64 kg

DRUGS (2)
  1. LETROZOLE. [Concomitant]
     Active Substance: LETROZOLE
     Indication: BREAST CANCER
     Dates: start: 20150901, end: 20151013
  2. SYNTHROID [Suspect]
     Active Substance: LEVOTHYROXINE SODIUM
     Indication: HYPOTHYROIDISM
     Dosage: APPROXIMATELY 15 YEARS
     Route: 065

REACTIONS (7)
  - Cholelithiasis [Not Recovered/Not Resolved]
  - Mammogram abnormal [Unknown]
  - Abdominal pain [Not Recovered/Not Resolved]
  - Urticaria [Not Recovered/Not Resolved]
  - Breast cancer [Recovered/Resolved]
  - Eructation [Not Recovered/Not Resolved]
  - Oestrogen receptor positive breast cancer [Unknown]

NARRATIVE: CASE EVENT DATE: 201506
